FAERS Safety Report 11236116 (Version 1)
Quarter: 2015Q3

REPORT INFORMATION
  Report Type: Spontaneous
  Country: US (occurrence: US)
  Receive Date: 20150702
  Receipt Date: 20150702
  Transmission Date: 20151125
  Serious: No
  Sender: FDA-Public Use
  Company Number: US-TAKEDA-2015TUS003553

PATIENT
  Age: 42 Year
  Sex: Female
  Weight: 85.26 kg

DRUGS (4)
  1. NUVARING [Concomitant]
     Active Substance: ETHINYL ESTRADIOL\ETONOGESTREL
     Indication: CONTRACEPTION
     Dosage: ONE RING INTRAVAGINALLY FOR THREE WEEKS EACH MONTH
     Route: 067
     Dates: start: 2010
  2. CONTRAVE [Suspect]
     Active Substance: BUPROPION HYDROCHLORIDE\NALTREXONE HYDROCHLORIDE
     Indication: OBESITY
     Dosage: 8/90 MG TABLET DAILY
     Route: 048
     Dates: start: 20150216, end: 20150317
  3. LISINOPRIL. [Concomitant]
     Active Substance: LISINOPRIL
     Indication: HYPERTENSION
     Dosage: 20 MG DAILY, STARTED YEARS AGO
     Route: 048
  4. BUSPAR [Concomitant]
     Active Substance: BUSPIRONE HYDROCHLORIDE
     Indication: ANXIETY
     Dosage: 5 MG, BID, STARTED YEARS AGO
     Route: 048

REACTIONS (1)
  - Metrorrhagia [Recovering/Resolving]

NARRATIVE: CASE EVENT DATE: 20150301
